FAERS Safety Report 8992326 (Version 1)
Quarter: 2012Q4

REPORT INFORMATION
  Report Type: 
  Country: JP (occurrence: JP)
  Receive Date: 20121231
  Receipt Date: 20121231
  Transmission Date: 20130627
  Serious: Yes (Other)
  Sender: FDA-Public Use
  Company Number: JP-PFIZER INC-2012332644

PATIENT
  Age: 8 None
  Sex: Male

DRUGS (2)
  1. CELECOX [Suspect]
     Indication: MYELOPATHY
     Dosage: 200 mg, daily
     Route: 048
     Dates: end: 20121218
  2. CELECOX [Suspect]
     Indication: CERVICAL SPONDYLOSIS

REACTIONS (2)
  - Pneumonia aspiration [Unknown]
  - Off label use [Unknown]
